FAERS Safety Report 4330744-1 (Version None)
Quarter: 2004Q1

REPORT INFORMATION
  Report Type: 
  Country: None (occurrence: None)
  Receive Date: 20040331
  Receipt Date: 20040316
  Transmission Date: 20041129
  Serious: Yes (Death)
  Sender: FDA-Public Use
  Company Number: A02200302093

PATIENT
  Age: 82 Year
  Sex: Female

DRUGS (7)
  1. ARIXTRA [Suspect]
     Indication: DEEP VENOUS THROMBOSIS PROPHYLAXIS
     Dosage: 2.5 MG OD SUBCUTANEOUS
     Route: 058
     Dates: start: 20030710, end: 20030715
  2. ARIXTRA [Suspect]
     Indication: KNEE ARTHROPLASTY
     Dosage: 2.5 MG OD SUBCUTANEOUS
     Route: 058
     Dates: start: 20030710, end: 20030715
  3. ACETAMINOPHEN [Concomitant]
  4. KETOPROFEN [Concomitant]
  5. OMEPRAZOLE [Concomitant]
  6. MORPHINE [Concomitant]
  7. CEFACIDAL (CEFAZOLIN SODIUM) [Concomitant]

REACTIONS (3)
  - POST PROCEDURAL HAEMORRHAGE [None]
  - SHOCK [None]
  - TRANSFUSION REACTION [None]
